FAERS Safety Report 24328623 (Version 1)
Quarter: 2024Q3

REPORT INFORMATION
  Report Type: Spontaneous
  Country: SK (occurrence: SK)
  Receive Date: 20240917
  Receipt Date: 20240917
  Transmission Date: 20241016
  Serious: Yes (Life-Threatening, Other)
  Sender: FRESENIUS KABI
  Company Number: None

PATIENT
  Sex: Female

DRUGS (1)
  1. PROPOFOL [Suspect]
     Active Substance: PROPOFOL
     Indication: General anaesthesia
     Dosage: FORM OF ADMINISTRATION: EMULSION FOR INJECTION/INFUSION
     Route: 042

REACTIONS (7)
  - Loss of consciousness [Recovered/Resolved]
  - Mydriasis [Recovered/Resolved]
  - Agitation [Recovered/Resolved]
  - Extrapyramidal disorder [Recovered/Resolved]
  - Restlessness [Recovered/Resolved]
  - Tachypnoea [Recovered/Resolved]
  - Hypertonia [Recovered/Resolved]
